FAERS Safety Report 25836962 (Version 1)
Quarter: 2025Q3

REPORT INFORMATION
  Report Type: Report from Study
  Country: US (occurrence: US)
  Receive Date: 20250923
  Receipt Date: 20250923
  Transmission Date: 20251021
  Serious: Yes (Death)
  Sender: AZURITY PHARMACEUTICALS
  Company Number: US-AZURITY PHARMACEUTICALS, INC.-AZR202506-001802

PATIENT
  Sex: Female

DRUGS (1)
  1. VIVIMUSTA [Suspect]
     Active Substance: BENDAMUSTINE HYDROCHLORIDE
     Indication: Chronic lymphocytic leukaemia
     Route: 042
     Dates: start: 20250310, end: 20250826

REACTIONS (2)
  - Death [Fatal]
  - Full blood count decreased [Unknown]

NARRATIVE: CASE EVENT DATE: 20250101
